FAERS Safety Report 5061341-0 (Version None)
Quarter: 2006Q3

REPORT INFORMATION
  Report Type: 
  Country: None (occurrence: None)
  Receive Date: 20060719
  Receipt Date: 20060719
  Transmission Date: 20061208
  Serious: Yes (Hospitalization)
  Sender: FDA-Public Use
  Company Number: None

PATIENT
  Sex: Male
  Weight: 93.4 kg

DRUGS (1)
  1. LEUKINE [Suspect]
     Indication: MYELODYSPLASTIC SYNDROME
     Dosage: 500MCG  DAILY  SQ; ONE DOSE
     Dates: start: 20060405

REACTIONS (10)
  - ACUTE CORONARY SYNDROME [None]
  - CHILLS [None]
  - CYTOKINE RELEASE SYNDROME [None]
  - DYSPNOEA [None]
  - FEELING ABNORMAL [None]
  - HYPERHIDROSIS [None]
  - MOVEMENT DISORDER [None]
  - MYALGIA [None]
  - NAUSEA [None]
  - PAIN IN EXTREMITY [None]
